FAERS Safety Report 5736717-6 (Version None)
Quarter: 2008Q2

REPORT INFORMATION
  Report Type: 
  Country: None (occurrence: None)
  Receive Date: 20080513
  Receipt Date: 20080507
  Transmission Date: 20081010
  Serious: Yes (Other)
  Sender: FDA-Public Use
  Company Number: JP-PFIZER INC-2008039922

PATIENT
  Age: 62 Year
  Sex: Male

DRUGS (3)
  1. XALATAN [Suspect]
     Route: 031
  2. TIMOPTIC [Concomitant]
     Route: 031
  3. TRUSOPT [Concomitant]
     Route: 031

REACTIONS (2)
  - GLAUCOMA SURGERY [None]
  - HYPOAESTHESIA [None]
